FAERS Safety Report 4679686-2 (Version None)
Quarter: 2005Q2

REPORT INFORMATION
  Report Type: 
  Country: None (occurrence: None)
  Receive Date: 20050531
  Receipt Date: 20050519
  Transmission Date: 20051028
  Serious: Yes (Other)
  Sender: FDA-Public Use
  Company Number: 2005-05-1300

PATIENT
  Age: 48 Year
  Sex: Female

DRUGS (5)
  1. NASONEX [Suspect]
     Indication: SINUSITIS
     Dosage: SEE IMAGE
     Route: 045
     Dates: start: 20050106, end: 20050401
  2. NEXIUM [Concomitant]
  3. PLAVIX [Concomitant]
  4. LOZIDE [Concomitant]
  5. ANTIBIOTIC  FOR SINUSITIS [Concomitant]

REACTIONS (2)
  - AGEUSIA [None]
  - ANOSMIA [None]
